FAERS Safety Report 7510591-X (Version None)
Quarter: 2011Q2

REPORT INFORMATION
  Report Type: 
  Country: None (occurrence: None)
  Receive Date: 20110530
  Receipt Date: 20110519
  Transmission Date: 20111010
  Serious: No
  Sender: FDA-Public Use
  Company Number: US-BIOGENIDEC-2011BI019153

PATIENT
  Age: 42 Year
  Sex: Female

DRUGS (4)
  1. AVONEX [Suspect]
     Route: 030
     Dates: start: 20090924, end: 20100926
  2. AVONEX [Suspect]
     Indication: MULTIPLE SCLEROSIS
     Route: 030
     Dates: start: 20110506
  3. AVONEX [Suspect]
     Route: 030
     Dates: start: 20081120
  4. AVONEX [Suspect]
     Route: 030
     Dates: start: 20070713, end: 20071018

REACTIONS (1)
  - ERYTHEMA [None]
